FAERS Safety Report 15233905 (Version 1)
Quarter: 2018Q3

REPORT INFORMATION
  Report Type: Spontaneous
  Country: AT (occurrence: AT)
  Receive Date: 20180802
  Receipt Date: 20180802
  Transmission Date: 20181010
  Serious: Yes (Other)
  Sender: FDA-Public Use
  Company Number: PHHY2018AT057942

PATIENT
  Age: 29 Month
  Sex: Male
  Weight: 17 kg

DRUGS (1)
  1. CYCLOPENTOLATE HCL [Suspect]
     Active Substance: CYCLOPENTOLATE HYDROCHLORIDE
     Indication: PRODUCT USED FOR UNKNOWN INDICATION
     Dosage: UNK
     Route: 047
     Dates: start: 20170428

REACTIONS (8)
  - Nervousness [Recovered/Resolved]
  - Restlessness [Recovered/Resolved]
  - Conduct disorder [Recovered/Resolved]
  - Body temperature increased [Recovered/Resolved]
  - Dysphemia [Recovered/Resolved]
  - Depression [Recovered/Resolved]
  - Language disorder [Recovered/Resolved]
  - Ataxia [Recovered/Resolved]

NARRATIVE: CASE EVENT DATE: 20170501
